FAERS Safety Report 17407317 (Version 2)
Quarter: 2020Q1

REPORT INFORMATION
  Report Type: Spontaneous
  Country: IE (occurrence: IE)
  Receive Date: 20200212
  Receipt Date: 20200317
  Transmission Date: 20200409
  Serious: Yes (Other)
  Sender: FDA-Public Use
  Company Number: IE-ABBVIE-20K-229-3270997-00

PATIENT
  Age: 47 Year
  Sex: Male

DRUGS (11)
  1. DICLOFENAC SODIUM. [Concomitant]
     Active Substance: DICLOFENAC SODIUM
     Indication: MUSCLE TIGHTNESS
     Dosage: ONE A DAY WHEN REQUIRED BUT NOT OFTEN.
  2. HUMIRA [Suspect]
     Active Substance: ADALIMUMAB
     Indication: COLITIS
     Dosage: INITIAL LOADING DOSE, THEN ONCE EVERY TWO WEEKS, THEN INCREASED TO ONCE WEEKLY.
     Route: 058
     Dates: end: 202001
  3. RACEMENTHOL [Concomitant]
     Active Substance: RACEMENTHOL
     Indication: PRODUCT USED FOR UNKNOWN INDICATION
  4. HUMIRA [Suspect]
     Active Substance: ADALIMUMAB
     Indication: ANKYLOSING SPONDYLITIS
     Dosage: INITIAL LOADING DOSE, THEN ONCE EVERY TWO WEEKS, THEN INCREASED TO ONCE WEEKLY.
     Route: 058
  5. DIFENE [Concomitant]
     Active Substance: DICLOFENAC SODIUM
     Indication: MUSCLE TIGHTNESS
     Dosage: ONE A DAY WHEN REQUIRED BUT NOT OFTEN.
  6. METHYL SALICYLATE [Concomitant]
     Active Substance: METHYL SALICYLATE
     Indication: PRODUCT USED FOR UNKNOWN INDICATION
  7. TURPENTINE OIL [Concomitant]
     Active Substance: TURPENTINE OIL
     Indication: MUSCLE TIGHTNESS
  8. MENTHOLATUM DEEP HEAT [Concomitant]
     Indication: MUSCLE TIGHTNESS
  9. MENTHOLATUM DEEP HEAT [Concomitant]
     Indication: MUSCLE TIGHTNESS
     Dosage: DAILY
  10. EUCALYPTUS OIL [Concomitant]
     Active Substance: EUCALYPTUS OIL
     Indication: PRODUCT USED FOR UNKNOWN INDICATION
  11. HUMIRA [Suspect]
     Active Substance: ADALIMUMAB
     Dosage: INITIAL LOADING DOSE, THEN ONCE EVERY TWO WEEKS, THEN INCREASED TO ONCE WEEKLY.
     Route: 058

REACTIONS (26)
  - Dyspnoea [Recovered/Resolved]
  - Condition aggravated [Unknown]
  - Heart rate increased [Recovering/Resolving]
  - Arrhythmia [Not Recovered/Not Resolved]
  - Gastric ulcer [Not Recovered/Not Resolved]
  - Pneumonia [Not Recovered/Not Resolved]
  - Influenza like illness [Recovered/Resolved]
  - Abdominal distension [Recovered/Resolved]
  - Fatigue [Recovered/Resolved]
  - Feeling abnormal [Recovered/Resolved]
  - Gastrooesophageal reflux disease [Recovered/Resolved]
  - Drug ineffective [Unknown]
  - Vision blurred [Recovered/Resolved]
  - Arthralgia [Recovered/Resolved]
  - Tremor [Recovered/Resolved]
  - Malaise [Not Recovered/Not Resolved]
  - Pneumonia [Not Recovered/Not Resolved]
  - Rash [Recovered/Resolved]
  - Abdominal hernia [Not Recovered/Not Resolved]
  - Headache [Recovered/Resolved]
  - Hyperhidrosis [Recovered/Resolved]
  - Blood cholesterol increased [Not Recovered/Not Resolved]
  - Myalgia [Recovered/Resolved]
  - Dyspepsia [Recovered/Resolved]
  - Palpitations [Unknown]
  - Hypertension [Not Recovered/Not Resolved]

NARRATIVE: CASE EVENT DATE: 202001
